FAERS Safety Report 24212997 (Version 1)
Quarter: 2024Q3

REPORT INFORMATION
  Report Type: Spontaneous
  Country: US (occurrence: US)
  Receive Date: 20240815
  Receipt Date: 20240815
  Transmission Date: 20241017
  Serious: No
  Sender: ROCHE
  Company Number: US-ROCHE-10000052083

PATIENT
  Sex: Female
  Weight: 113 kg

DRUGS (1)
  1. EVRYSDI [Suspect]
     Active Substance: RISDIPLAM
     Indication: Spinal muscular atrophy
     Dosage: STRENGTH: 60MG/80ML
     Route: 048

REACTIONS (3)
  - Ill-defined disorder [Unknown]
  - Dysphagia [Unknown]
  - Device difficult to use [Unknown]
